FAERS Safety Report 4444720-1 (Version None)
Quarter: 2004Q3

REPORT INFORMATION
  Report Type: 
  Country: None (occurrence: None)
  Receive Date: 20040903
  Receipt Date: 20040825
  Transmission Date: 20050211
  Serious: Yes (Disabling, Other)
  Sender: FDA-Public Use
  Company Number: 2004058655

PATIENT
  Age: 77 Year
  Sex: Female

DRUGS (4)
  1. LIPITOR [Suspect]
     Indication: ILL-DEFINED DISORDER
     Dosage: 10 MG (1 IN 1 D); ORAL (SEE IMAGE)
     Route: 048
     Dates: end: 20040816
  2. NICERGOLINE [Concomitant]
  3. LOXOPROFEN SODIUM [Concomitant]
  4. MOSAPRIDE CITRATE [Concomitant]

REACTIONS (7)
  - ABASIA [None]
  - DEPRESSED LEVEL OF CONSCIOUSNESS [None]
  - DYSSTASIA [None]
  - ELECTROCARDIOGRAM ABNORMAL [None]
  - MALAISE [None]
  - MENTAL IMPAIRMENT [None]
  - RHABDOMYOLYSIS [None]
